FAERS Safety Report 8880958 (Version 2)
Quarter: 2012Q4

REPORT INFORMATION
  Report Type: 
  Country: US (occurrence: US)
  Receive Date: 20121101
  Receipt Date: 20121205
  Transmission Date: 20130627
  Serious: Yes (Other)
  Sender: FDA-Public Use
  Company Number: US-PFIZER INC-2012268084

PATIENT
  Age: 60 Year
  Sex: Female
  Weight: 59 kg

DRUGS (10)
  1. SUTENT [Suspect]
     Indication: METASTATIC RENAL CELL CARCINOMA
     Dosage: 50 mg, first 42 day cycle
     Dates: start: 201111, end: 20120201
  2. AMLODIPINE [Concomitant]
     Dosage: UNK
  3. BENAZEPRIL [Concomitant]
     Dosage: UNK
  4. SYNTHROID [Concomitant]
     Dosage: 125 ug
  5. LEVOTHYROXINE [Concomitant]
     Dosage: UNK
  6. SERTRALINE [Concomitant]
     Dosage: UNK
  7. COMPAZINE [Concomitant]
     Dosage: UNK
  8. ZOFRAN [Concomitant]
     Dosage: UNK
  9. REGLAN [Concomitant]
     Dosage: UNK
  10. PEPCID [Concomitant]
     Dosage: UNK

REACTIONS (16)
  - Platelet count decreased [Recovered/Resolved]
  - Lung disorder [Unknown]
  - Blood thyroid stimulating hormone increased [Not Recovered/Not Resolved]
  - Dyspepsia [Unknown]
  - Face oedema [Unknown]
  - Diarrhoea [Unknown]
  - Dysgeusia [Unknown]
  - Yellow skin [Unknown]
  - Hair colour changes [Unknown]
  - Epistaxis [Unknown]
  - Fatigue [Unknown]
  - Dehydration [Unknown]
  - Asthenia [Unknown]
  - Feeling abnormal [Unknown]
  - Blood potassium decreased [Recovered/Resolved]
  - Blood magnesium decreased [Recovered/Resolved]
